FAERS Safety Report 13593347 (Version 1)
Quarter: 2017Q2

REPORT INFORMATION
  Report Type: Report from Study
  Country: US (occurrence: US)
  Receive Date: 20170530
  Receipt Date: 20170530
  Transmission Date: 20170830
  Serious: Yes (Other)
  Sender: FDA-Public Use
  Company Number: US-CIPLA LTD.-2017US09600

PATIENT

DRUGS (3)
  1. OXALIPLATIN. [Suspect]
     Active Substance: OXALIPLATIN
     Indication: SMALL INTESTINE CARCINOMA METASTATIC
     Dosage: 130 MG/M2, ON DAY 1, ONLY 1 CYCLE
     Route: 042
  2. CAPECITABINE. [Suspect]
     Active Substance: CAPECITABINE
     Indication: SMALL INTESTINE CARCINOMA METASTATIC
     Dosage: 750 MG/M2, TWICE DAILY ON DAYS 1 TO 14, ONLY 1 CYCLE
     Route: 048
  3. BEVACIZUMAB [Suspect]
     Active Substance: BEVACIZUMAB
     Indication: SMALL INTESTINE CARCINOMA METASTATIC
     Dosage: 7.5 MG/KG, ON DAY 1, ONLY 1 CYCLE
     Route: 042

REACTIONS (3)
  - Duodenal obstruction [Unknown]
  - Performance status decreased [Unknown]
  - Bile duct obstruction [Unknown]
